FAERS Safety Report 4461103-9 (Version None)
Quarter: 2004Q3

REPORT INFORMATION
  Report Type: 
  Country: None (occurrence: None)
  Receive Date: 20040923
  Receipt Date: 20040913
  Transmission Date: 20050211
  Serious: Yes (Hospitalization)
  Sender: FDA-Public Use
  Company Number: US-2004-030387

PATIENT
  Age: 62 Year
  Sex: Female
  Weight: 79.4 kg

DRUGS (9)
  1. BETASERON [Suspect]
     Indication: MULTIPLE SCLEROSIS
     Dosage: 8 MIU, EVERY 2D, SUBCUTANEOUS
     Route: 058
     Dates: start: 20040413, end: 20040813
  2. CLOMIPRAMINE HCL [Concomitant]
  3. TRAZODONE HCL [Concomitant]
  4. SIMVASTATIN (ZOCOR) (SIMVASTATIN) [Concomitant]
  5. TRICOR [Concomitant]
  6. AVANDIA [Concomitant]
  7. BEXTRA [Concomitant]
  8. NEXIUM [Concomitant]
  9. NADOLOL [Concomitant]

REACTIONS (7)
  - CONSTIPATION [None]
  - DIVERTICULITIS [None]
  - ENTEROCOLITIS INFECTIOUS [None]
  - KIDNEY INFECTION [None]
  - POST PROCEDURAL HAEMORRHAGE [None]
  - POSTOPERATIVE INFECTION [None]
  - RECTAL HAEMORRHAGE [None]
